FAERS Safety Report 4621310-9 (Version None)
Quarter: 2005Q1

REPORT INFORMATION
  Report Type: 
  Country: None (occurrence: None)
  Receive Date: 20050323
  Receipt Date: 20050323
  Transmission Date: 20050727
  Serious: Yes (Hospitalization)
  Sender: FDA-Public Use
  Company Number: None

PATIENT
  Sex: Male
  Weight: 67.1324 kg

DRUGS (6)
  1. CRESTOR [Suspect]
     Indication: HYPERCHOLESTEROLAEMIA
     Dosage: 1 PILL DAILY
     Dates: start: 20050101, end: 20050222
  2. ASPIRIN [Concomitant]
  3. ANAFRANIL CAP [Concomitant]
  4. ZETIA [Concomitant]
  5. B12 [Concomitant]
  6. LUPRON [Concomitant]

REACTIONS (3)
  - ASTHENIA [None]
  - DIFFICULTY IN WALKING [None]
  - FALL [None]
